FAERS Safety Report 20170813 (Version 1)
Quarter: 2021Q4

REPORT INFORMATION
  Report Type: Spontaneous
  Country: JP (occurrence: JP)
  Receive Date: 20211210
  Receipt Date: 20211210
  Transmission Date: 20220303
  Serious: Yes (Other)
  Sender: FDA-Public Use
  Company Number: JP-BAYER-2021A262104

PATIENT
  Sex: Male

DRUGS (1)
  1. JIVI [Suspect]
     Active Substance: DAMOCTOCOG ALFA PEGOL
     Dosage: UNK
     Route: 042

REACTIONS (4)
  - Muscle haemorrhage [Unknown]
  - Chills [Unknown]
  - Drug specific antibody present [None]
  - Therapeutic product effect incomplete [None]
